FAERS Safety Report 9879922 (Version 1)
Quarter: 2014Q1

REPORT INFORMATION
  Report Type: Spontaneous
  Country: BR (occurrence: BR)
  Receive Date: 20140207
  Receipt Date: 20140207
  Transmission Date: 20141002
  Serious: Yes (Other)
  Sender: FDA-Public Use
  Company Number: BR-AMGEN-BRASP2014008133

PATIENT
  Age: 50 Year
  Sex: Female
  Weight: 64 kg

DRUGS (3)
  1. ENBREL [Suspect]
     Indication: RHEUMATOID ARTHRITIS
     Dosage: 50 MG, ONCE WEEKLY
     Route: 058
     Dates: start: 201303
  2. HYDROCHLOROTHIAZIDE W/VALSARTAN [Concomitant]
     Indication: HYPERTENSION
     Dosage: [VALSARTAN 32MG] / [HYDROCHLOROTHIAZIDE 25MG] (ONE TABLET), IN THE MORNING
     Route: 065
  3. ATENOLOL [Concomitant]
     Indication: HYPERTENSION
     Dosage: (STRENGTH 25MG) TWO TABLETS, IN THE MORNING AND AT NIGHT
     Route: 065

REACTIONS (1)
  - Blood pressure increased [Not Recovered/Not Resolved]
